FAERS Safety Report 8868235 (Version 1)
Quarter: 2012Q4

REPORT INFORMATION
  Report Type: 
  Country: US (occurrence: US)
  Receive Date: 20121026
  Receipt Date: 20121026
  Transmission Date: 20130627
  Serious: No
  Sender: FDA-Public Use
  Company Number: US-AMGEN-USASP2012040210

PATIENT
  Sex: Male

DRUGS (8)
  1. ENBREL [Suspect]
     Indication: PRODUCT USED FOR UNKNOWN INDICATION
     Dosage: 50 mg, qwk
  2. METHOTREXATE [Concomitant]
     Dosage: 2.5 mg, UNK
  3. FOLIC ACID [Concomitant]
     Dosage: 1 mg, UNK
  4. BISOPROLOL HCT [Concomitant]
     Dosage: 10/6.25
  5. HYDROCODONE/APAP [Concomitant]
     Dosage: 7.5-325
  6. LOSARTAN POTASSIUM [Concomitant]
     Dosage: 100 mg
  7. FLAXSEED OIL [Concomitant]
     Dosage: 1000 mg
  8. FISH OIL [Concomitant]
     Dosage: UNK

REACTIONS (3)
  - Injection site haematoma [Unknown]
  - Injection site reaction [Unknown]
  - Injection site haemorrhage [Unknown]
